FAERS Safety Report 5980870-6 (Version None)
Quarter: 2008Q4

REPORT INFORMATION
  Report Type: 
  Country: None (occurrence: None)
  Receive Date: 20081205
  Receipt Date: 20080617
  Transmission Date: 20090506
  Serious: No
  Sender: FDA-Public Use
  Company Number: A0733294A

PATIENT
  Age: 66 Year
  Sex: Female

DRUGS (2)
  1. COMMIT [Suspect]
     Dates: start: 20080604, end: 20080604
  2. NICORETTE [Suspect]

REACTIONS (3)
  - MALAISE [None]
  - NAUSEA [None]
  - ORAL DISCOMFORT [None]
